FAERS Safety Report 9462988 (Version 2)
Quarter: 2013Q4

REPORT INFORMATION
  Report Type: Report from Study
  Country: GB (occurrence: GB)
  Receive Date: 20130816
  Receipt Date: 20131007
  Transmission Date: 20140711
  Serious: Yes (Hospitalization, Other)
  Sender: FDA-Public Use
  Company Number: GB-CELGENEUS-167-21880-13080508

PATIENT
  Age: 61 Year
  Sex: Female
  Weight: 82 kg

DRUGS (8)
  1. REVLIMID [Suspect]
     Indication: PLASMA CELL MYELOMA
     Dosage: 25 MILLIGRAM
     Route: 048
     Dates: start: 20100807, end: 20100827
  2. REVLIMID [Suspect]
     Dosage: 25 MILLIGRAM
     Route: 048
     Dates: start: 20101004, end: 20101024
  3. REVLIMID [Suspect]
     Dosage: 25 MILLIGRAM
     Route: 048
     Dates: start: 20101101, end: 20101118
  4. DEXAMETHASONE [Suspect]
     Indication: PLASMA CELL MYELOMA
     Route: 048
     Dates: start: 20100806, end: 20101023
  5. METOCLOPRAMIDE [Concomitant]
     Indication: MALAISE
     Dosage: 10 MILLIGRAM
     Route: 048
     Dates: start: 20100806
  6. SANDO K [Concomitant]
     Indication: BLOOD POTASSIUM
     Dosage: 4 TABLET
     Route: 048
     Dates: start: 20100924, end: 20100926
  7. SODIUM CLODRONATE [Concomitant]
     Indication: PROPHYLAXIS
     Dosage: 1600 MILLIGRAM
     Route: 048
     Dates: start: 20100924, end: 20101022
  8. TRANEXAMIC ACID [Concomitant]
     Indication: HAEMORRHAGE PROPHYLAXIS
     Dosage: 3 GRAM
     Route: 048
     Dates: start: 20100924, end: 20101001

REACTIONS (5)
  - Dysarthria [Unknown]
  - Diarrhoea [Unknown]
  - Asthenia [Unknown]
  - Adrenal insufficiency [Recovered/Resolved]
  - Fatigue [Recovered/Resolved]
